FAERS Safety Report 5094097-6 (Version None)
Quarter: 2006Q3

REPORT INFORMATION
  Report Type: 
  Country: None (occurrence: None)
  Receive Date: 20060831
  Receipt Date: 20060627
  Transmission Date: 20061208
  Serious: Yes (Other)
  Sender: FDA-Public Use
  Company Number: JP-MERCK-0607USA01452

PATIENT
  Age: 36 Year
  Sex: Male
  Weight: 63 kg

DRUGS (2)
  1. PROPECIA [Suspect]
     Indication: MALE PATTERN BALDNESS
     Route: 048
     Dates: start: 20060413, end: 20060518
  2. PROPECIA [Suspect]
     Route: 048
     Dates: start: 20060519

REACTIONS (4)
  - ALOPECIA [None]
  - PIGMENTATION DISORDER [None]
  - RASH [None]
  - SWELLING FACE [None]
